FAERS Safety Report 9192775 (Version 1)
Quarter: 2013Q1

REPORT INFORMATION
  Report Type: Spontaneous
  Country: FR (occurrence: None)
  Receive Date: 20130325
  Receipt Date: 20130325
  Transmission Date: 20140127
  Serious: Yes (Other)
  Sender: FDA-Public Use
  Company Number: ENTC2013-0112

PATIENT
  Age: 77 Year
  Sex: Male

DRUGS (7)
  1. STALEVO (LEVODOPA, CARBIDOPA, ENTACAPONE) [Suspect]
     Dosage: 5 TIMES DAILY
     Route: 048
     Dates: start: 20120320
  2. SINEMET [Suspect]
     Indication: PARKINSON^S DISEASE
     Dosage: 375/37.5 MG, 5 TIMES DAILY
     Route: 048
     Dates: start: 20120320
  3. TRANXENE [Suspect]
     Dosage: (10 MG, 3 IN 1 D)
     Route: 048
     Dates: start: 20120320, end: 20120328
  4. GLUCOR [Concomitant]
  5. MOTILIUM [Concomitant]
  6. PRETERAX [Concomitant]
  7. TADENAN [Concomitant]

REACTIONS (8)
  - Overdose [None]
  - Abnormal behaviour [None]
  - Aggression [None]
  - Disturbance in attention [None]
  - Disturbance in attention [None]
  - Dehydration [None]
  - Hypoglycaemia [None]
  - Urinary tract infection [None]
